FAERS Safety Report 6873315-5 (Version None)
Quarter: 2010Q3

REPORT INFORMATION
  Report Type: 
  Country: None (occurrence: None)
  Receive Date: 20100723
  Receipt Date: 20090401
  Transmission Date: 20110219
  Serious: No
  Sender: FDA-Public Use
  Company Number: US-PFIZER INC-2008159730

PATIENT
  Sex: Female
  Weight: 96.615 kg

DRUGS (22)
  1. CHANTIX [Suspect]
     Indication: SMOKING CESSATION THERAPY
     Dates: start: 20081001
  2. PLAVIX [Concomitant]
     Dosage: UNK
  3. LEVOTHYROXINE SODIUM [Concomitant]
     Indication: THYROID DISORDER
     Dosage: UNK
  4. DICYCLOMINE [Concomitant]
     Indication: GASTRIC DISORDER
  5. DIPHENOXYLATE [Concomitant]
     Indication: DIARRHOEA
  6. HYDROCODONE BITARTRATE [Concomitant]
     Indication: PAIN
     Dosage: UNK
  7. ADVAIR DISKUS 100/50 [Concomitant]
     Dosage: UNK
  8. TRICOR [Concomitant]
     Dosage: UNK
  9. MIDRIN [Concomitant]
     Indication: MIGRAINE
     Dosage: UNK
  10. THEOPHYLLINE [Concomitant]
     Dosage: UNK
  11. VERAPAMIL HYDROCHLORIDE [Concomitant]
     Indication: HYPERTENSION
     Dosage: UNK
  12. BACLOFEN [Concomitant]
     Dosage: UNK
  13. SERTRALINE HYDROCHLORIDE [Concomitant]
     Dosage: UNK
  14. HYDROXYZINE [Concomitant]
     Dosage: UNK
  15. REQUIP [Concomitant]
     Indication: RESTLESS LEGS SYNDROME
     Dosage: UNK
  16. PREVACID [Concomitant]
     Indication: GASTRIC DISORDER
     Dosage: UNK
  17. SIMVASTATIN [Concomitant]
     Dosage: UNK
  18. METOPROLOL TARTRATE [Concomitant]
     Indication: CARDIAC DISORDER
     Dosage: UNK
  19. NABUMETONE [Concomitant]
     Dosage: UNK
  20. NITROGLYCERIN [Concomitant]
     Dosage: UNK
  21. ALPRAZOLAM [Concomitant]
     Dosage: UNK
  22. ACTONEL [Concomitant]
     Indication: OSTEOPOROSIS
     Dosage: UNK

REACTIONS (3)
  - ABNORMAL DREAMS [None]
  - INFLUENZA [None]
  - OROPHARYNGEAL PAIN [None]
